FAERS Safety Report 4390701-6 (Version None)
Quarter: 2004Q2

REPORT INFORMATION
  Report Type: 
  Country: None (occurrence: None)
  Receive Date: 20040629
  Receipt Date: 20040118
  Transmission Date: 20050107
  Serious: Yes (Hospitalization, Other)
  Sender: FDA-Public Use
  Company Number: KII-2004-0011499

PATIENT
  Age: 1 Day
  Sex: Male

DRUGS (1)
  1. OXYCODONE HCL [Suspect]
     Dosage: TRANSPLACENTAL
     Route: 064

REACTIONS (6)
  - DRUG EXPOSURE DURING PREGNANCY [None]
  - IRRITABILITY [None]
  - NEONATAL COMPLICATIONS OF SUBSTANCE ABUSE [None]
  - NERVOUSNESS [None]
  - PREMATURE BABY [None]
  - TREMOR NEONATAL [None]
